FAERS Safety Report 16452769 (Version 2)
Quarter: 2019Q3

REPORT INFORMATION
  Report Type: Report from Study
  Country: US (occurrence: US)
  Receive Date: 20190619
  Receipt Date: 20190903
  Transmission Date: 20191004
  Serious: No
  Sender: FDA-Public Use
  Company Number: US-SA-2019SA154793

PATIENT
  Age: 64 Year
  Sex: Female

DRUGS (1)
  1. AGALSIDASE BETA [Suspect]
     Active Substance: AGALSIDASE BETA
     Indication: FABRY^S DISEASE
     Dosage: DOSE: 85.00; FREQUENCY: Q2
     Route: 042
     Dates: start: 20181024

REACTIONS (2)
  - Cough [Unknown]
  - Infusion site bruising [Recovering/Resolving]
